FAERS Safety Report 5832225-2 (Version None)
Quarter: 2008Q3

REPORT INFORMATION
  Report Type: 
  Country: None (occurrence: None)
  Receive Date: 20080804
  Receipt Date: 20080801
  Transmission Date: 20090109
  Serious: Yes (Death, Hospitalization)
  Sender: FDA-Public Use
  Company Number: BR-BRISTOL-MYERS SQUIBB COMPANY-14281109

PATIENT
  Age: 43 Year
  Sex: Female
  Weight: 64 kg

DRUGS (9)
  1. CARBOPLATIN [Suspect]
     Indication: SMALL CELL LUNG CANCER EXTENSIVE STAGE
     Dosage: THRPY:22OCT07-UNKNWN,750MG,IV 23NOV07-01DEC07,9D,740MG,IV. WITHDRAWN ON 01DEC2007
     Route: 042
     Dates: start: 20071022, end: 20071022
  2. ETOPOSIDE [Suspect]
     Indication: SMALL CELL LUNG CANCER EXTENSIVE STAGE
     Dosage: THRPY:22OCT07-UNKNWN,160MG,IV; 23NOV07-01DEC07,9D,170MG,IV.WITHDRAWN ON 01DEC2007
     Route: 042
     Dates: start: 20071022, end: 20071022
  3. FLUOXETINE [Concomitant]
     Indication: DEPRESSION
     Dates: start: 20070926
  4. MORFIN [Concomitant]
     Dates: start: 20070828
  5. IPRATROPIUM BROMIDE [Concomitant]
     Dates: start: 20070802, end: 20071123
  6. FENOTEROL [Concomitant]
     Dates: start: 20070802, end: 20071123
  7. DEXAMETHASONE [Concomitant]
     Indication: DYSPNOEA
     Dates: start: 20070802
  8. AMITRIPTYLINE HCL [Concomitant]
     Indication: PAIN
     Dates: start: 20070829
  9. DIPYRONE [Concomitant]
     Indication: PAIN
     Dates: start: 20070802, end: 20070926

REACTIONS (2)
  - PERFORMANCE STATUS DECREASED [None]
  - SUDDEN DEATH [None]
